FAERS Safety Report 4815333-4 (Version None)
Quarter: 2005Q4

REPORT INFORMATION
  Report Type: 
  Country: None (occurrence: None)
  Receive Date: 20051026
  Receipt Date: 20051006
  Transmission Date: 20060501
  Serious: Yes (Other)
  Sender: FDA-Public Use
  Company Number: USA050599033

PATIENT
  Age: 72 Year
  Sex: Female
  Weight: 42 kg

DRUGS (1)
  1. FORTEO [Suspect]
     Indication: OSTEOPOROSIS
     Dates: start: 20050228

REACTIONS (2)
  - PAIN IN EXTREMITY [None]
  - WEIGHT DECREASED [None]
